FAERS Safety Report 24566346 (Version 1)
Quarter: 2024Q4

REPORT INFORMATION
  Report Type: Spontaneous
  Country: US (occurrence: None)
  Receive Date: 20241029
  Receipt Date: 20241029
  Transmission Date: 20250114
  Serious: No
  Sender: Public
  Company Number: None

PATIENT
  Age: 66 Year
  Sex: Male

DRUGS (3)
  1. QUETIAPINE FUMARATE [Suspect]
     Active Substance: QUETIAPINE FUMARATE
     Dates: start: 20240411, end: 20240411
  2. ACETAMINOPHEN\HYDROCODONE [Suspect]
     Active Substance: ACETAMINOPHEN\HYDROCODONE
     Dates: start: 20240411, end: 20240411
  3. CANNABIS SATIVA SUBSP. INDICA TOP [Suspect]
     Active Substance: CANNABIS SATIVA SUBSP. INDICA TOP

REACTIONS (9)
  - Intentional overdose [None]
  - Suicide attempt [None]
  - Hypotension [None]
  - Myopia [None]
  - Respiratory depression [None]
  - Sinus tachycardia [None]
  - Hypoxia [None]
  - Opiates positive [None]
  - Drug screen positive [None]

NARRATIVE: CASE EVENT DATE: 20240411
